FAERS Safety Report 8181503-3 (Version None)
Quarter: 2012Q1

REPORT INFORMATION
  Report Type: 
  Country: None (occurrence: None)
  Receive Date: 20120302
  Receipt Date: 20120301
  Transmission Date: 20120608
  Serious: Yes (Other)
  Sender: FDA-Public Use
  Company Number: AU-PFIZER INC-2012054459

PATIENT
  Age: 68 Year
  Sex: Male

DRUGS (4)
  1. LIPITOR [Suspect]
     Dosage: 10 MG, UNK
     Dates: start: 20070101
  2. ATACAND [Concomitant]
  3. ACETAMINOPHEN [Concomitant]
     Dosage: OCCASIONALLY
  4. RISPERDAL [Concomitant]

REACTIONS (3)
  - WEIGHT INCREASED [None]
  - BLOOD GLUCOSE INCREASED [None]
  - ARTHRALGIA [None]
